FAERS Safety Report 7914301 (Version 3)
Quarter: 2013Q3

REPORT INFORMATION
  Report Type: Spontaneous
  Country: US (occurrence: US)
  Receive Date: 20110426
  Receipt Date: 20130927
  Transmission Date: 20140515
  Serious: Yes (Hospitalization, Other)
  Sender: FDA-Public Use
  Company Number: US-JNJFOC-20110408235

PATIENT
  Sex: Female

DRUGS (5)
  1. LEVAQUIN [Suspect]
     Indication: RASH
     Route: 042
     Dates: start: 2008
  2. LEVAQUIN [Suspect]
     Indication: STAPHYLOCOCCAL INFECTION
     Route: 065
  3. LEVAQUIN [Suspect]
     Indication: PRODUCT USED FOR UNKNOWN INDICATION
     Route: 065
  4. VANCOMYCIN [Suspect]
     Indication: INFECTION
     Route: 042
  5. ROCEPHIN [Suspect]
     Indication: INFECTION
     Route: 042

REACTIONS (4)
  - Stevens-Johnson syndrome [Unknown]
  - Erythema multiforme [Unknown]
  - Abasia [Unknown]
  - Toxic shock syndrome [Unknown]
